FAERS Safety Report 6370412-8 (Version None)
Quarter: 2009Q3

REPORT INFORMATION
  Report Type: 
  Country: None (occurrence: None)
  Receive Date: 20090921
  Receipt Date: 20090921
  Transmission Date: 20100115
  Serious: Yes (Hospitalization)
  Sender: FDA-Public Use
  Company Number: None

PATIENT
  Sex: Female
  Weight: 70 kg

DRUGS (4)
  1. CYTARABINE [Suspect]
     Dosage: 905 MG
     Dates: end: 20090714
  2. DAUNORUBICIN HCL [Suspect]
     Dosage: 326 MG
     Dates: end: 20090711
  3. ETOPOSIDE [Suspect]
     Dosage: 362 MG
     Dates: end: 20090711
  4. G-CSF (FILGRASTIM, AMGEN) [Suspect]
     Dosage: 3840 MCG
     Dates: end: 20090729

REACTIONS (6)
  - CULTURE POSITIVE [None]
  - ESCHERICHIA INFECTION [None]
  - FEBRILE NEUTROPENIA [None]
  - PNEUMONIA [None]
  - PSEUDOMONAS INFECTION [None]
  - RESPIRATORY FAILURE [None]
